FAERS Safety Report 9302149 (Version 2)
Quarter: 2013Q4

REPORT INFORMATION
  Report Type: Spontaneous
  Country: US (occurrence: US)
  Receive Date: 20130522
  Receipt Date: 20131112
  Transmission Date: 20140711
  Serious: Yes (Hospitalization)
  Sender: FDA-Public Use
  Company Number: US-B.I. PHARMACEUTICALS,INC./RIDGEFIELD-2013-BI-14234BP

PATIENT
  Age: 81 Year
  Sex: Female
  Weight: 63.05 kg

DRUGS (11)
  1. PRADAXA [Suspect]
     Indication: ANTICOAGULANT THERAPY
     Dosage: 300 MG
     Dates: start: 20110219, end: 20110709
  2. CALCIUM CARBONATE [Concomitant]
     Dosage: 500 MG
  3. PRISTIQ [Concomitant]
  4. MULTAQ [Concomitant]
  5. ADVAIR [Concomitant]
  6. GLUCOSAMINE WITH CHONDROITIN [Concomitant]
  7. MICROZIDE [Concomitant]
  8. COMBIVENT [Concomitant]
     Indication: DYSPNOEA
  9. DEMEROL [Concomitant]
  10. AMBIEN [Concomitant]
  11. HYDROCHLOROTHIAZIDE [Concomitant]

REACTIONS (2)
  - Gastrointestinal haemorrhage [Unknown]
  - Haemorrhagic anaemia [Unknown]
